FAERS Safety Report 9276969 (Version 1)
Quarter: 2013Q2

REPORT INFORMATION
  Report Type: Spontaneous
  Country: PH (occurrence: PH)
  Receive Date: 20130507
  Receipt Date: 20130507
  Transmission Date: 20140414
  Serious: Yes (Hospitalization)
  Sender: FDA-Public Use
  Company Number: PH-009507513-1305PHL001582

PATIENT
  Age: 53 Year
  Sex: Female
  Weight: 55.78 kg

DRUGS (1)
  1. COZAAR [Suspect]
     Dosage: 1 DF, QD
     Route: 048

REACTIONS (2)
  - Blood pressure increased [Unknown]
  - Migraine [Unknown]
